FAERS Safety Report 7993366-7 (Version None)
Quarter: 2011Q4

REPORT INFORMATION
  Report Type: 
  Country: None (occurrence: None)
  Receive Date: 20111219
  Receipt Date: 20110203
  Transmission Date: 20120403
  Serious: No
  Sender: FDA-Public Use
  Company Number: US-ASTRAZENECA-2011SE06184

PATIENT
  Age: 73 Year
  Sex: Female
  Weight: 79.4 kg

DRUGS (5)
  1. CRESTOR [Suspect]
     Indication: HYPERCHOLESTEROLAEMIA
     Dosage: DAILY
     Route: 048
     Dates: start: 20050101
  2. ACE INHIBITOR [Concomitant]
     Indication: HYPERTENSION
  3. ASPIRIN [Concomitant]
  4. TOPROL-XL [Concomitant]
     Indication: HYPERTENSION
  5. CRESTOR [Suspect]
     Route: 048

REACTIONS (1)
  - TENDONITIS [None]
